FAERS Safety Report 9636814 (Version 2)
Quarter: 2013Q4

REPORT INFORMATION
  Report Type: Spontaneous
  Country: US (occurrence: US)
  Receive Date: 20131022
  Receipt Date: 20131113
  Transmission Date: 20140711
  Serious: Yes (Death)
  Sender: FDA-Public Use
  Company Number: US-BIOGENIDEC-2013BI099459

PATIENT
  Age: 34 Year
  Sex: Female

DRUGS (10)
  1. TYSABRI [Suspect]
     Indication: CROHN^S DISEASE
     Route: 042
     Dates: start: 20080501, end: 20080501
  2. TOPIRAMATE [Concomitant]
  3. DICYCLOMINE [Concomitant]
  4. HYDROCODONE [Concomitant]
  5. ZOLPIDEM [Concomitant]
  6. MECLIZINE [Concomitant]
  7. TRAMADOL [Concomitant]
  8. PHENERGAN [Concomitant]
  9. KLONOPIN [Concomitant]
  10. TUMS [Concomitant]

REACTIONS (1)
  - Death [Fatal]
